FAERS Safety Report 7615795-3 (Version None)
Quarter: 2011Q3

REPORT INFORMATION
  Report Type: 
  Country: None (occurrence: None)
  Receive Date: 20110711
  Receipt Date: 20110624
  Transmission Date: 20111222
  Serious: Yes (Other)
  Sender: FDA-Public Use
  Company Number: 2011MA008025

PATIENT
  Age: 38 Year
  Sex: Female

DRUGS (4)
  1. PYRAZINAMIDE [Suspect]
     Indication: PULMONARY TUBERCULOSIS
  2. ISONIAZID [Suspect]
     Indication: PULMONARY TUBERCULOSIS
  3. RIFAMPIN [Suspect]
     Indication: PULMONARY TUBERCULOSIS
  4. STREPTOMYCIN [Suspect]
     Indication: PULMONARY TUBERCULOSIS

REACTIONS (1)
  - ASTHMA [None]
